FAERS Safety Report 11496259 (Version 2)
Quarter: 2015Q4

REPORT INFORMATION
  Report Type: Spontaneous
  Country: US (occurrence: US)
  Receive Date: 20150911
  Receipt Date: 20151001
  Transmission Date: 20160304
  Serious: Yes (Other)
  Sender: FDA-Public Use
  Company Number: US-JNJFOC-20150905841

PATIENT
  Age: 76 Year
  Sex: Female

DRUGS (1)
  1. REMICADE [Suspect]
     Active Substance: INFLIXIMAB
     Indication: CROHN^S DISEASE
     Dosage: FOR AT LEAST 5 YEARS
     Route: 042
     Dates: start: 201006, end: 201509

REACTIONS (3)
  - Lupus-like syndrome [Recovered/Resolved with Sequelae]
  - Ileostomy [Unknown]
  - Drug ineffective [Unknown]

NARRATIVE: CASE EVENT DATE: 201509
